FAERS Safety Report 7376105-2 (Version None)
Quarter: 2011Q1

REPORT INFORMATION
  Report Type: 
  Country: None (occurrence: None)
  Receive Date: 20110317
  Receipt Date: 20110308
  Transmission Date: 20110831
  Serious: Yes (Death)
  Sender: FDA-Public Use
  Company Number: 2011SP001836

PATIENT
  Sex: Female

DRUGS (4)
  1. PROPOFOL [Concomitant]
  2. VECURONIUM BROMIDE [Concomitant]
  3. DEXAMETHASONE [Suspect]
     Indication: PRODUCT USED FOR UNKNOWN INDICATION
     Dosage: 4 MG; Q6H
  4. REMIFENTANIL [Concomitant]

REACTIONS (12)
  - HYPERTENSION [None]
  - BRAIN MIDLINE SHIFT [None]
  - URINARY TRACT INFECTION [None]
  - RENAL FAILURE ACUTE [None]
  - DIABETES INSIPIDUS [None]
  - PUPIL FIXED [None]
  - BRAIN OEDEMA [None]
  - THIRST [None]
  - DIABETIC KETOACIDOSIS [None]
  - HYPERGLYCAEMIA [None]
  - METABOLIC ACIDOSIS [None]
  - BRADYCARDIA [None]
